FAERS Safety Report 11375594 (Version 1)
Quarter: 2015Q3

REPORT INFORMATION
  Report Type: Spontaneous
  Country: GR (occurrence: GR)
  Receive Date: 20150813
  Receipt Date: 20150813
  Transmission Date: 20151125
  Serious: Yes (Hospitalization)
  Sender: FDA-Public Use
  Company Number: GR-EISAI MEDICAL RESEARCH-EC-2015-009480

PATIENT
  Age: 53 Year
  Sex: Female

DRUGS (12)
  1. INIPARIB [Suspect]
     Active Substance: INIPARIB
     Indication: INVASIVE DUCTAL BREAST CARCINOMA
     Dosage: UNKNOWN
     Route: 065
  2. 5-FLUOROURACIL [Suspect]
     Active Substance: FLUOROURACIL
     Indication: INVASIVE DUCTAL BREAST CARCINOMA
     Dosage: UNKNOWN
     Route: 065
  3. PACLITAXEL. [Suspect]
     Active Substance: PACLITAXEL
     Indication: INVASIVE DUCTAL BREAST CARCINOMA
     Dosage: UNKNOWN
     Route: 065
  4. ZOLEDRONIC ACID [Suspect]
     Active Substance: ZOLEDRONIC ACID
     Indication: INVASIVE DUCTAL BREAST CARCINOMA
     Dosage: UNKNOWN
     Route: 065
  5. VINORELBINE [Suspect]
     Active Substance: VINORELBINE\VINORELBINE TARTRATE
     Indication: INVASIVE DUCTAL BREAST CARCINOMA
     Dosage: UNKNOWN
     Route: 065
  6. ERIBULIN [Suspect]
     Active Substance: ERIBULIN
     Indication: INVASIVE DUCTAL BREAST CARCINOMA
     Dosage: UNKNOWN
     Route: 041
  7. CAPECITABINE. [Suspect]
     Active Substance: CAPECITABINE
     Indication: INVASIVE DUCTAL BREAST CARCINOMA
     Dosage: UNKNOWN
     Route: 065
  8. DOCETAXEL. [Suspect]
     Active Substance: DOCETAXEL
     Indication: INVASIVE DUCTAL BREAST CARCINOMA
     Dosage: UNKNOWN
     Route: 065
  9. LIPOSOMAL DOXORUBICIN HCL [Suspect]
     Active Substance: DOXORUBICIN HYDROCHLORIDE
     Indication: INVASIVE DUCTAL BREAST CARCINOMA
     Dosage: UNKNOWN
     Route: 048
  10. NOVANTRONE [Suspect]
     Active Substance: MITOXANTRONE HYDROCHLORIDE
     Indication: INVASIVE DUCTAL BREAST CARCINOMA
     Dosage: UNKNOWN
     Route: 065
  11. BEVACIZUMAB [Suspect]
     Active Substance: BEVACIZUMAB
     Indication: INVASIVE DUCTAL BREAST CARCINOMA
     Dosage: UNKNOWN
     Route: 065
  12. GEMCITABINE [Suspect]
     Active Substance: GEMCITABINE\GEMCITABINE HYDROCHLORIDE
     Indication: INVASIVE DUCTAL BREAST CARCINOMA
     Dosage: UNKNOWN
     Route: 065

REACTIONS (3)
  - Thrombocytopenia [Unknown]
  - Bone marrow infiltration [Unknown]
  - Anaemia [Unknown]

NARRATIVE: CASE EVENT DATE: 201503
